FAERS Safety Report 24944271 (Version 3)
Quarter: 2025Q1

REPORT INFORMATION
  Report Type: Spontaneous
  Country: US (occurrence: US)
  Receive Date: 20250208
  Receipt Date: 20250319
  Transmission Date: 20250409
  Serious: Yes (Life-Threatening, Other)
  Sender: AMGEN
  Company Number: US-AMGEN-USASP2025024267

PATIENT
  Sex: Male
  Weight: 2.452 kg

DRUGS (2)
  1. AIMOVIG [Suspect]
     Active Substance: ERENUMAB-AOOE
     Indication: Foetal exposure during pregnancy
     Route: 064
  2. UBRELVY [Concomitant]
     Active Substance: UBROGEPANT

REACTIONS (6)
  - Neonatal asphyxia [Unknown]
  - Foetal growth restriction [Unknown]
  - Anaemia [Unknown]
  - Torticollis [Unknown]
  - Foetal exposure during pregnancy [Unknown]
  - Umbilical cord short [Unknown]
